FAERS Safety Report 7767069-8 (Version None)
Quarter: 2011Q3

REPORT INFORMATION
  Report Type: 
  Country: None (occurrence: None)
  Receive Date: 20110922
  Receipt Date: 20101201
  Transmission Date: 20111222
  Serious: No
  Sender: FDA-Public Use
  Company Number: US-ASTRAZENECA-2010SE56993

PATIENT
  Age: 47 Year
  Sex: Male
  Weight: 72.6 kg

DRUGS (3)
  1. SEROQUEL [Suspect]
     Indication: SLEEP DISORDER
     Route: 048
     Dates: start: 20090101
  2. SEROQUEL [Suspect]
     Route: 048
  3. SEROQUEL [Suspect]
     Route: 048

REACTIONS (5)
  - HYPERSOMNIA [None]
  - MUSCULOSKELETAL DISCOMFORT [None]
  - INTERVERTEBRAL DISC PROTRUSION [None]
  - HYPERMETROPIA [None]
  - WEIGHT DECREASED [None]
